FAERS Safety Report 8835646 (Version 1)
Quarter: 2012Q4

REPORT INFORMATION
  Report Type: 
  Country: US (occurrence: US)
  Receive Date: 20121011
  Receipt Date: 20121011
  Transmission Date: 20130627
  Serious: Yes (Hospitalization)
  Sender: FDA-Public Use
  Company Number: PHEH2012US019841

PATIENT
  Sex: Female

DRUGS (1)
  1. EXELON PATCH [Suspect]
     Indication: DEMENTIA
     Route: 062

REACTIONS (5)
  - Micturition disorder [Unknown]
  - Aphasia [Unknown]
  - Sneezing [Unknown]
  - Swelling face [Unknown]
  - Blepharospasm [Unknown]
